FAERS Safety Report 5668674-5 (Version None)
Quarter: 2008Q1

REPORT INFORMATION
  Report Type: 
  Country: None (occurrence: None)
  Receive Date: 20080312
  Receipt Date: 20080229
  Transmission Date: 20080703
  Serious: No
  Sender: FDA-Public Use
  Company Number: 2006VX001783

PATIENT

DRUGS (1)
  1. TASMAR (TOLCAPONE) [Suspect]
     Dosage: PO
     Route: 048
     Dates: end: 19981101

REACTIONS (1)
  - PARKINSONISM [None]
